FAERS Safety Report 24703907 (Version 1)
Quarter: 2024Q4

REPORT INFORMATION
  Report Type: Report from Study
  Country: IT (occurrence: IT)
  Receive Date: 20241206
  Receipt Date: 20241206
  Transmission Date: 20250114
  Serious: Yes (Hospitalization, Other)
  Sender: ALEXION PHARMACEUTICALS
  Company Number: None

PATIENT
  Age: 57 Year

DRUGS (4)
  1. LYNPARZA [Suspect]
     Active Substance: OLAPARIB
     Indication: Ovarian cancer
     Dosage: 600MG DAILY
  2. LYNPARZA [Suspect]
     Active Substance: OLAPARIB
     Dosage: 600MG DAILY
  3. LYNPARZA [Suspect]
     Active Substance: OLAPARIB
     Dosage: 600MG DAILY
  4. LYNPARZA [Suspect]
     Active Substance: OLAPARIB
     Dosage: 600MG DAILY

REACTIONS (5)
  - Acute myeloid leukaemia [Not Recovered/Not Resolved]
  - Cough [Not Recovered/Not Resolved]
  - Anaemia [Not Recovered/Not Resolved]
  - Thrombocytopenia [Not Recovered/Not Resolved]
  - Pyrexia [Not Recovered/Not Resolved]
